FAERS Safety Report 8110867-1 (Version None)
Quarter: 2012Q1

REPORT INFORMATION
  Report Type: 
  Country: None (occurrence: None)
  Receive Date: 20120203
  Receipt Date: 20120130
  Transmission Date: 20120608
  Serious: Yes (Other)
  Sender: FDA-Public Use
  Company Number: US-JNJFOC-20120200217

PATIENT
  Sex: Female
  Weight: 79.83 kg

DRUGS (2)
  1. ELMIRON [Suspect]
     Indication: CYSTITIS
     Route: 048
     Dates: start: 20110201, end: 20110501
  2. ELMIRON [Suspect]
     Route: 048
     Dates: start: 20110501, end: 20120127

REACTIONS (6)
  - HAEMATOCHEZIA [None]
  - DRUG INEFFECTIVE [None]
  - ABDOMINAL PAIN UPPER [None]
  - DYSGEUSIA [None]
  - OVERDOSE [None]
  - ABNORMAL LOSS OF WEIGHT [None]
